FAERS Safety Report 7578248 (Version 6)
Quarter: 2015Q1

REPORT INFORMATION
  Report Type: Report from Study
  Country: JP (occurrence: JP)
  Receive Date: 20100909
  Receipt Date: 20150223
  Transmission Date: 20150721
  Serious: No
  Sender: FDA-Public Use
  Company Number: JP-PFIZER INC-2010109858

PATIENT
  Age: 72 Year
  Sex: Male
  Weight: 50.5 kg

DRUGS (13)
  1. ETHAMBUTOL [Concomitant]
     Active Substance: ETHAMBUTOL HYDROCHLORIDE
     Indication: ATYPICAL MYCOBACTERIAL INFECTION
     Dosage: 750 MG, ONCE DAILY
     Route: 048
     Dates: start: 2005
  2. ETHAMBUTOL [Concomitant]
     Active Substance: ETHAMBUTOL HYDROCHLORIDE
     Indication: MYCOBACTERIAL INFECTION
  3. AMIKACIN [Concomitant]
     Active Substance: AMIKACIN
     Indication: ATYPICAL MYCOBACTERIAL INFECTION
     Dosage: 400 MG, ONCE DAILY
     Route: 048
     Dates: start: 20090925, end: 20100121
  4. OMEPRAZOLE. [Concomitant]
     Active Substance: OMEPRAZOLE
     Indication: PROPHYLAXIS AGAINST GASTROINTESTINAL ULCER
     Dosage: 20 MG, ONCE DAILY
     Route: 048
     Dates: start: 20090920, end: 20091228
  5. ISONIAZIDE [Concomitant]
     Active Substance: ISONIAZID
     Indication: ATYPICAL MYCOBACTERIAL INFECTION
     Dosage: 300 MG, ONCE DAILY
     Route: 048
     Dates: start: 20090925
  6. ISONIAZIDE [Concomitant]
     Active Substance: ISONIAZID
     Indication: MYCOBACTERIAL INFECTION
  7. RIFABUTIN. [Suspect]
     Active Substance: RIFABUTIN
     Indication: ATYPICAL MYCOBACTERIAL INFECTION
  8. LOXOPROFEN [Concomitant]
     Active Substance: LOXOPROFEN
     Indication: PAIN
     Dosage: 60 MG, 3X/DAY
     Route: 048
     Dates: end: 20091228
  9. OPALMON [Concomitant]
     Active Substance: LIMAPROST
     Dosage: 5 ?G, 3X/DAY
     Route: 048
  10. RIFAMPICIN [Concomitant]
     Active Substance: RIFAMPIN
     Indication: ATYPICAL MYCOBACTERIAL INFECTION
     Dosage: 450 MG, 1X/DAY
     Route: 048
     Dates: start: 20100121
  11. RIFABUTIN. [Suspect]
     Active Substance: RIFABUTIN
     Indication: MYCOBACTERIUM AVIUM COMPLEX INFECTION
     Dosage: 300 MG, ONCE DAILY
     Dates: start: 20090925, end: 20091218
  12. CARBOCISTEINE [Concomitant]
     Active Substance: CARBOCYSTEINE
     Dosage: 500 MG, 3 TIMES DAILY
     Route: 048
  13. AMIKACIN [Concomitant]
     Active Substance: AMIKACIN
     Indication: MYCOBACTERIAL INFECTION

REACTIONS (1)
  - Lung disorder [Recovered/Resolved]

NARRATIVE: CASE EVENT DATE: 20091211
